FAERS Safety Report 16538753 (Version 1)
Quarter: 2019Q3

REPORT INFORMATION
  Report Type: Spontaneous
  Country: US (occurrence: US)
  Receive Date: 20190708
  Receipt Date: 20190708
  Transmission Date: 20191004
  Serious: No
  Sender: FDA-Public Use
  Company Number: US-BAYER-2019-127925

PATIENT
  Weight: 72.56 kg

DRUGS (2)
  1. CLARITIN [Suspect]
     Active Substance: LORATADINE
     Dosage: UNK
  2. SERTRALINE HCL [Suspect]
     Active Substance: SERTRALINE HYDROCHLORIDE

REACTIONS (4)
  - Rash [Unknown]
  - Dyspnoea [Unknown]
  - Urticaria [Unknown]
  - Asthma [Unknown]

NARRATIVE: CASE EVENT DATE: 20170404
